FAERS Safety Report 23145465 (Version 1)
Quarter: 2023Q4

REPORT INFORMATION
  Report Type: Spontaneous
  Country: DE (occurrence: DE)
  Receive Date: 20231103
  Receipt Date: 20231103
  Transmission Date: 20240109
  Serious: Yes (Death, Other)
  Sender: FDA-Public Use
  Company Number: None

PATIENT
  Age: 55 Year
  Sex: Female
  Weight: 71 kg

DRUGS (105)
  1. ATROVENT [Suspect]
     Active Substance: IPRATROPIUM BROMIDE
     Indication: Respiration abnormal
     Dosage: UNK
     Route: 065
     Dates: start: 19990521, end: 19990521
  2. ALPROSTADIL ALFADEX [Suspect]
     Active Substance: ALPROSTADIL ALFADEX
     Indication: Poor peripheral circulation
     Dosage: UNK
     Route: 065
     Dates: start: 19990521, end: 19990521
  3. ALPROSTADIL ALFADEX [Suspect]
     Active Substance: ALPROSTADIL ALFADEX
     Dates: start: 19990503, end: 19990511
  4. METHOTREXATE SODIUM [Suspect]
     Active Substance: METHOTREXATE SODIUM
     Indication: Prophylaxis against transplant rejection
     Dosage: UNK
     Dates: start: 19990429, end: 19990429
  5. METHOTREXATE SODIUM [Suspect]
     Active Substance: METHOTREXATE SODIUM
     Dosage: UNK
     Dates: start: 19990501, end: 19990501
  6. TROMETHAMINE [Suspect]
     Active Substance: TROMETHAMINE
     Indication: Metabolic acidosis
     Dosage: UNK
     Route: 065
     Dates: start: 19990518, end: 19990518
  7. NEUPOGEN [Suspect]
     Active Substance: FILGRASTIM
     Indication: Neutropenia
     Dosage: 700 ?G, QD
     Route: 065
     Dates: start: 19990521, end: 19990521
  8. METHYLPREDNISOLONE [Suspect]
     Active Substance: METHYLPREDNISOLONE
     Indication: Prophylaxis against graft versus host disease
     Dosage: UNK
     Route: 065
     Dates: start: 19990507
  9. METHYLPREDNISOLONE [Suspect]
     Active Substance: METHYLPREDNISOLONE
     Indication: Bone graft
     Dosage: UNK
     Route: 065
     Dates: start: 19990425, end: 19990425
  10. METHYLPREDNISOLONE [Suspect]
     Active Substance: METHYLPREDNISOLONE
     Dosage: UNK
     Route: 065
     Dates: start: 19990427, end: 19990428
  11. METHYLPREDNISOLONE [Suspect]
     Active Substance: METHYLPREDNISOLONE
     Route: 042
     Dates: start: 19990425
  12. PLASMA PROTEIN FRACTION (HUMAN) [Suspect]
     Active Substance: PLASMA PROTEIN FRACTION (HUMAN)
     Indication: Product used for unknown indication
     Dosage: UNK, 1 DOSAGE TOTAL, SINGLE
     Route: 065
     Dates: start: 19990519, end: 19990519
  13. OMEPRAZOLE [Suspect]
     Active Substance: OMEPRAZOLE
     Indication: Prophylaxis against gastrointestinal ulcer
     Dosage: 40 MG, QD
     Route: 065
     Dates: start: 19990502
  14. OMEPRAZOLE [Suspect]
     Active Substance: OMEPRAZOLE
     Indication: Prophylaxis
  15. MORPHINE [Suspect]
     Active Substance: MORPHINE
     Indication: Pain
     Dosage: 0.5 MG
     Route: 065
     Dates: start: 19990501, end: 19990520
  16. DOXYCYCLINE [Suspect]
     Active Substance: DOXYCYCLINE
     Indication: Pneumonia
     Dosage: UNK
     Route: 065
     Dates: start: 19990518
  17. ISOPROMETHAZINE HYDROCHLORIDE [Suspect]
     Active Substance: ISOPROMETHAZINE HYDROCHLORIDE
     Indication: Product used for unknown indication
     Dosage: 25 MG, QD, DAILY DOSE: 25 MG MILLIGRAM(S) EVERY DAY
     Route: 065
     Dates: start: 19990518, end: 19990520
  18. VANCOMYCIN [Suspect]
     Active Substance: VANCOMYCIN
     Indication: Pneumonia
     Dosage: 1000 MG, QD
     Route: 065
     Dates: start: 19990521, end: 19990521
  19. THEOPHYLLINE ANHYDROUS [Suspect]
     Active Substance: THEOPHYLLINE ANHYDROUS
     Indication: Dyspnoea
     Dosage: 400 MG, QD
     Route: 065
     Dates: start: 19990519, end: 19990519
  20. THEOPHYLLINE ANHYDROUS [Suspect]
     Active Substance: THEOPHYLLINE ANHYDROUS
     Indication: Respiratory failure
     Dosage: 400 MG, QD
     Route: 065
     Dates: start: 19990520, end: 19990520
  21. NYSTATIN [Suspect]
     Active Substance: NYSTATIN
     Indication: Candida infection
     Dosage: UNCLEAR WHETHER ADMINISTERED 3 OR 4 TIMES.
     Route: 065
     Dates: start: 19990423, end: 19990423
  22. TOBRAMYCIN [Suspect]
     Active Substance: TOBRAMYCIN
     Indication: Pneumonia
     Dosage: UNK
     Route: 065
     Dates: start: 19990519
  23. TOBRAMYCIN [Suspect]
     Active Substance: TOBRAMYCIN
     Dosage: UNK
     Route: 065
     Dates: start: 19990511, end: 19990514
  24. LETROZOLE [Suspect]
     Active Substance: LETROZOLE
     Indication: Coagulopathy
     Dosage: 2 DOSAGE FORM, QD
     Route: 065
     Dates: start: 19990519, end: 19990519
  25. ACETYLCYSTEINE [Suspect]
     Active Substance: ACETYLCYSTEINE
     Indication: Mucositis management
     Dosage: UNK, QD
     Route: 065
     Dates: start: 19990502
  26. PROMETHAZINE HYDROCHLORIDE [Suspect]
     Active Substance: PROMETHAZINE HYDROCHLORIDE
     Indication: Restlessness
     Dosage: UNK
     Route: 065
     Dates: start: 19990518, end: 19990520
  27. TOBRAMYCIN SULFATE [Suspect]
     Active Substance: TOBRAMYCIN SULFATE
     Indication: Pneumonia
     Route: 065
     Dates: start: 19990511
  28. PROPOFOL [Suspect]
     Active Substance: PROPOFOL
     Indication: Anaesthesia
     Dosage: 15 ML
     Route: 042
     Dates: start: 19990521, end: 19990521
  29. AMPHOTERICIN B [Suspect]
     Active Substance: AMPHOTERICIN B
     Indication: Bronchopulmonary aspergillosis
     Dosage: UNK
     Route: 065
     Dates: start: 19990430
  30. THEOPHYLLINE [Suspect]
     Active Substance: THEOPHYLLINE
     Indication: Bronchospasm
     Dosage: 4 ML
     Route: 065
     Dates: start: 19990519, end: 19990520
  31. SULTANOL [Suspect]
     Active Substance: ALBUTEROL SULFATE
     Indication: Bronchospasm
     Dosage: UNK
     Route: 065
     Dates: start: 19990519
  32. ALBUMIN HUMAN [Suspect]
     Active Substance: ALBUMIN HUMAN
     Indication: Hypoalbuminaemia
     Dosage: 250 ML, 1 DOSE 4 HOURS
     Route: 065
     Dates: start: 19990516, end: 19990516
  33. DOXYCYCLINE [Suspect]
     Active Substance: DOXYCYCLINE
     Indication: Pneumonia
     Dosage: UNK, 1 DOSAGE TOTAL
     Route: 065
     Dates: start: 19990519, end: 19990519
  34. NOVALGIN (METAMIZOLE SODIUM) [Suspect]
     Active Substance: METAMIZOLE SODIUM
     Indication: Pain
     Dosage: UNK
     Route: 065
     Dates: start: 19990506, end: 19990516
  35. NOVALGIN (METAMIZOLE SODIUM) [Suspect]
     Active Substance: METAMIZOLE SODIUM
     Dosage: UNK
     Route: 065
     Dates: start: 19990427, end: 19990427
  36. FUROSEMIDE [Suspect]
     Active Substance: FUROSEMIDE
     Indication: Oedema
     Dosage: UNK
     Route: 065
     Dates: start: 19990425, end: 19990425
  37. FUROSEMIDE [Suspect]
     Active Substance: FUROSEMIDE
     Dosage: UNK
     Route: 065
     Dates: start: 19990504, end: 19990504
  38. FUROSEMIDE [Suspect]
     Active Substance: FUROSEMIDE
     Dosage: UNK
     Route: 065
     Dates: start: 19990506
  39. FUROSEMIDE [Suspect]
     Active Substance: FUROSEMIDE
     Dosage: UNK
     Route: 065
     Dates: start: 19990428, end: 19990502
  40. FUROSEMIDE [Suspect]
     Active Substance: FUROSEMIDE
     Route: 042
     Dates: start: 19990425
  41. NOREPINEPHRINE HYDROCHLORIDE, (+/-)- [Suspect]
     Active Substance: NOREPINEPHRINE HYDROCHLORIDE, (+/-)-
     Indication: Cardiovascular disorder
     Dosage: UNK
     Route: 065
     Dates: start: 19990521, end: 19990521
  42. OFLOXACIN [Suspect]
     Active Substance: OFLOXACIN
     Indication: Pneumonia bacterial
     Dosage: 400 MG, QD
     Dates: start: 19990428, end: 19990503
  43. OFLOXACIN [Suspect]
     Active Substance: OFLOXACIN
     Dosage: 400 MG, QD
     Dates: end: 19990527
  44. BROMAZEPAM [Suspect]
     Active Substance: BROMAZEPAM
     Indication: Restlessness
     Dosage: UNK
     Route: 065
     Dates: start: 19990503, end: 19990505
  45. BROMAZEPAM [Suspect]
     Active Substance: BROMAZEPAM
     Dosage: 3 MG
     Route: 065
     Dates: start: 19990430, end: 19990430
  46. BROMAZEPAM [Suspect]
     Active Substance: BROMAZEPAM
     Dosage: 3 MG
     Route: 065
     Dates: start: 19990423, end: 19990505
  47. ERYTHROMYCIN [Suspect]
     Active Substance: ERYTHROMYCIN
     Indication: Pneumonia
     Route: 065
     Dates: start: 19990517
  48. GANCICLOVIR [Suspect]
     Active Substance: GANCICLOVIR
     Indication: Prophylaxis
     Dosage: UNK
     Route: 065
     Dates: start: 19990519
  49. ACTRAPID [Suspect]
     Active Substance: INSULIN HUMAN
     Indication: Hyperglycaemia
     Dosage: UNK
     Route: 065
     Dates: start: 19990519, end: 19990520
  50. SUFENTA [Suspect]
     Active Substance: SUFENTANIL CITRATE
     Indication: Anaesthesia
     Dosage: 3 ML
     Route: 065
     Dates: start: 19990521, end: 19990521
  51. PANTOPRAZOLE SODIUM [Suspect]
     Active Substance: PANTOPRAZOLE SODIUM
     Indication: Prophylaxis against gastrointestinal ulcer
     Dosage: UNK
     Route: 065
     Dates: start: 19990521, end: 19990521
  52. CILASTATIN SODIUM\IMIPENEM [Suspect]
     Active Substance: CILASTATIN SODIUM\IMIPENEM
     Indication: Pneumonia
     Dosage: 1500 MG, QD
     Route: 065
     Dates: start: 19990517
  53. CILASTATIN SODIUM\IMIPENEM [Suspect]
     Active Substance: CILASTATIN SODIUM\IMIPENEM
     Dosage: 1500 MG, QD
     Route: 065
     Dates: start: 19990517
  54. INSULIN NOS [Suspect]
     Active Substance: INSULIN NOS
     Indication: Hyperglycaemia
     Dosage: UNK, 1 DOSAGE TOTAL
     Route: 065
     Dates: start: 19990517, end: 19990517
  55. TARGOCID [Suspect]
     Active Substance: TEICOPLANIN
     Indication: Pneumonia
     Dosage: UNK
     Route: 065
     Dates: start: 19990503
  56. CEFTAZIDIME [Suspect]
     Active Substance: CEFTAZIDIME
     Indication: Pneumonia
     Dosage: 4 G, QD
     Route: 065
     Dates: start: 19990503, end: 19990517
  57. TAVOR (LORAZEPAM) [Suspect]
     Active Substance: LORAZEPAM
     Indication: Restlessness
     Dosage: 1 MG, QD
     Route: 065
     Dates: start: 19990519, end: 19990520
  58. NYSTATIN [Suspect]
     Active Substance: NYSTATIN
     Indication: Candida infection
     Dosage: 12 ML, QD
     Route: 065
     Dates: start: 19990516
  59. NYSTATIN [Suspect]
     Active Substance: NYSTATIN
     Indication: Drug therapy
     Dosage: 12 MG, UNCLEAR WHETHER ADMINISTERED 3 OR 4 TIMES.
     Route: 065
     Dates: start: 19990423, end: 19990423
  60. CALCIUM GLUCONATE [Concomitant]
     Active Substance: CALCIUM GLUCONATE
     Indication: Hypocalcaemia
     Dosage: 20 ML, QD
     Dates: start: 19990429, end: 19990508
  61. MESNA [Concomitant]
     Active Substance: MESNA
     Indication: Prophylaxis
     Dosage: UNK
     Route: 065
     Dates: start: 19990425, end: 19990426
  62. AMINO ACIDS, SOURCE UNSPECIFIED [Concomitant]
     Active Substance: AMINO ACIDS, SOURCE UNSPECIFIED
     Indication: Nutritional supplementation
     Dosage: 100 ML
     Route: 065
  63. ZOFRAN [Concomitant]
     Active Substance: ONDANSETRON HYDROCHLORIDE
     Indication: Nausea
     Dosage: 16 MG
     Route: 065
     Dates: end: 19990426
  64. ZOFRAN [Concomitant]
     Active Substance: ONDANSETRON HYDROCHLORIDE
     Dosage: 16 MG
     Route: 065
     Dates: start: 19990427, end: 19990503
  65. LENOGRASTIM [Concomitant]
     Active Substance: LENOGRASTIM
     Indication: Neutropenia
     Dosage: UNK
     Route: 065
     Dates: start: 19990429
  66. KCL [Concomitant]
     Active Substance: POTASSIUM CHLORIDE
     Indication: Hypokalaemia
     Dosage: UNK
     Route: 065
     Dates: start: 19990424
  67. HEPARIN [Concomitant]
     Active Substance: HEPARIN SODIUM
     Indication: Thrombosis prophylaxis
     Dosage: 18000 UNK, QD
     Route: 065
     Dates: end: 19990427
  68. Clont [Concomitant]
     Indication: Bacterial infection
     Dosage: 1500 MG, QD
     Route: 065
     Dates: start: 19990428
  69. Clont [Concomitant]
     Indication: Pneumonia bacterial
     Dosage: 1500 MG, QD
     Route: 065
     Dates: end: 19990427
  70. AMPHOTERICIN B [Concomitant]
     Active Substance: AMPHOTERICIN B
     Indication: Candida infection
     Dosage: 20 MG
     Route: 065
  71. AMPHOTERICIN B [Concomitant]
     Active Substance: AMPHOTERICIN B
     Indication: Pneumonia mycoplasmal
     Dosage: 4 ML, QD
     Route: 065
     Dates: start: 19990424, end: 19990521
  72. MYLERAN [Concomitant]
     Active Substance: BUSULFAN
     Indication: Bone marrow transplant
     Dosage: 284 UNK, QD
     Route: 065
     Dates: start: 19990423, end: 19990423
  73. CAVERJECT [Concomitant]
     Active Substance: ALPROSTADIL
     Indication: Product used for unknown indication
     Dosage: UNK
     Route: 065
     Dates: start: 19990503, end: 19990521
  74. SODIUM BICARBONATE [Concomitant]
     Active Substance: SODIUM BICARBONATE
     Indication: Product used for unknown indication
     Dosage: UNK
     Route: 065
     Dates: start: 19990517, end: 19990517
  75. FAMOTIDINE [Concomitant]
     Active Substance: FAMOTIDINE
     Indication: Prophylaxis against gastrointestinal ulcer
     Dosage: 40 UNK, QD
     Route: 065
     Dates: end: 19990502
  76. INTRALIPID [Concomitant]
     Active Substance: EGG PHOSPHOLIPIDS\GLYCERIN\SOYBEAN OIL
     Indication: Nutritional supplementation
     Dosage: 200 ML
     Route: 065
  77. CYCLOSPORINE [Concomitant]
     Active Substance: CYCLOSPORINE
     Indication: Bone marrow transplant
     Dosage: UNK
     Route: 065
     Dates: start: 19990427, end: 19990521
  78. SODIUM CHLORIDE [Concomitant]
     Active Substance: SODIUM CHLORIDE
     Indication: Hyponatraemia
     Dosage: 50 ML, QD
     Route: 065
     Dates: start: 19990429, end: 19990505
  79. SODIUM CHLORIDE [Concomitant]
     Active Substance: SODIUM CHLORIDE
     Indication: Volume blood decreased
     Dosage: UNK
     Route: 065
     Dates: start: 19990424, end: 19990426
  80. CYCLOPHOSPHAMIDE [Concomitant]
     Active Substance: CYCLOPHOSPHAMIDE
     Indication: Bone marrow transplant
     Dosage: 4260 MG, QD
     Route: 065
     Dates: start: 19990425, end: 19990426
  81. VITINTRA [Concomitant]
     Active Substance: ERGOCALCIFEROL\PHYTONADIONE\RETINOL\VITAMIN A PALMITATE
     Indication: Nutritional supplementation
     Dosage: UNK
     Route: 065
  82. VITINTRA [Concomitant]
     Active Substance: ERGOCALCIFEROL\PHYTONADIONE\RETINOL\VITAMIN A PALMITATE
     Dosage: UNK
     Route: 065
  83. VITINTRA [Concomitant]
     Active Substance: ERGOCALCIFEROL\PHYTONADIONE\RETINOL\VITAMIN A PALMITATE
     Dosage: UNK
     Route: 065
  84. DEXAMETHASONE [Concomitant]
     Active Substance: DEXAMETHASONE
     Indication: Bone marrow transplant
     Dosage: 24 MG, QD
     Route: 065
     Dates: start: 19990424, end: 19990426
  85. TARAXACUM OFFICINALE EXTRACT;TARAXACUM OFFICINALE POWDER [Concomitant]
     Indication: Nutritional supplementation
     Dosage: GIVEN ON 18 MAY AND 21 MAY ONLY.
     Route: 065
     Dates: start: 19990518, end: 19990521
  86. CLEMASTINE FUMARATE [Concomitant]
     Active Substance: CLEMASTINE FUMARATE
     Indication: Pruritus
     Dosage: UNK
     Route: 065
     Dates: start: 19990425
  87. MAGNESIUM ASPARTATE\POTASSIUM ASPARTATE [Concomitant]
     Active Substance: MAGNESIUM ASPARTATE\POTASSIUM ASPARTATE
     Indication: Nutritional supplementation
     Dosage: 10 ML
     Route: 065
  88. MAGNESIUM ASPARTATE\POTASSIUM ASPARTATE [Concomitant]
     Active Substance: MAGNESIUM ASPARTATE\POTASSIUM ASPARTATE
     Dosage: 10 ML
     Route: 065
  89. MAGNESIUM ASPARTATE\POTASSIUM ASPARTATE [Concomitant]
     Active Substance: MAGNESIUM ASPARTATE\POTASSIUM ASPARTATE
     Dosage: 10 ML
     Route: 065
  90. MAGNESIUM ASPARTATE\POTASSIUM ASPARTATE [Concomitant]
     Active Substance: MAGNESIUM ASPARTATE\POTASSIUM ASPARTATE
     Dosage: 10 ML
     Route: 065
  91. MAGNESIUM ASPARTATE\POTASSIUM ASPARTATE [Concomitant]
     Active Substance: MAGNESIUM ASPARTATE\POTASSIUM ASPARTATE
     Dosage: 10 ML
     Route: 065
  92. SEMPERA [Concomitant]
     Active Substance: ITRACONAZOLE
     Indication: Fungal infection
     Dosage: 200 MG, QD
     Route: 065
     Dates: end: 19990429
  93. OCTAGAM IMMUNE GLOBULIN (HUMAN) [Concomitant]
     Active Substance: HUMAN IMMUNOGLOBULIN G
     Indication: Bone marrow transplant
     Dosage: UNK, INTERMITTENT DOSING.
     Route: 065
     Dates: start: 19990429, end: 19990519
  94. KONAKION [Concomitant]
     Active Substance: PHYTONADIONE
     Indication: Vitamin K deficiency
     Dosage: 10 MG
     Route: 065
     Dates: start: 19990426, end: 19990517
  95. ZOVIRAX [Concomitant]
     Active Substance: ACYCLOVIR
     Indication: Prophylaxis
     Dosage: UNK
     Route: 065
     Dates: start: 19990426, end: 19990519
  96. DEXTROSE [Concomitant]
     Active Substance: DEXTROSE\DEXTROSE MONOHYDRATE
     Indication: Nutritional supplementation
     Dosage: UNK{ 5 OR 40% SOLUTIONS. NOT GIVEN 28 MAY TO 16 APR.?FORM OF ADMIN: SOLUTION
     Route: 065
     Dates: start: 19990424
  97. VITAMINS [Concomitant]
     Active Substance: VITAMINS
     Indication: Nutritional supplementation
     Dosage: UNK
     Route: 065
  98. VITAMINS [Concomitant]
     Active Substance: VITAMINS
     Dosage: UNK
     Route: 065
  99. VITAMINS [Concomitant]
     Active Substance: VITAMINS
     Dosage: UNK
     Route: 065
  100. VITAMINS [Concomitant]
     Active Substance: VITAMINS
     Dosage: UNK
     Route: 065
  101. PENTACARINAT [Concomitant]
     Active Substance: PENTAMIDINE ISETHIONATE
     Indication: Pneumonia
     Dosage: 300 MG, QD
     Route: 065
     Dates: end: 19990425
  102. LAPINE T-LYMPHOCYTE IMMUNE GLOBULIN [Concomitant]
     Active Substance: LAPINE T-LYMPHOCYTE IMMUNE GLOBULIN
     Indication: Bone marrow transplant
     Dosage: UNK
     Route: 065
     Dates: start: 19990427, end: 19990427
  103. PHENYTOIN [Concomitant]
     Active Substance: PHENYTOIN
     Indication: Prophylaxis
     Dosage: 400 MG, QD
     Route: 065
     Dates: start: 19990419, end: 19990427
  104. MAGNESIUM [Concomitant]
     Active Substance: MAGNESIUM
     Indication: Hypomagnesaemia
     Dosage: UNK, INTERMITTENT DOSING.
     Route: 065
     Dates: start: 19990429, end: 19990513
  105. ETOPOSIDE [Concomitant]
     Active Substance: ETOPOSIDE
     Indication: Bone marrow transplant
     Dosage: 2130 MG, QD
     Route: 065
     Dates: start: 19990424, end: 19990424

REACTIONS (2)
  - Stevens-Johnson syndrome [Fatal]
  - Toxic epidermal necrolysis [Recovered/Resolved]

NARRATIVE: CASE EVENT DATE: 19990521
